FAERS Safety Report 18166756 (Version 1)
Quarter: 2020Q3

REPORT INFORMATION
  Report Type: Spontaneous
  Country: US (occurrence: US)
  Receive Date: 20200818
  Receipt Date: 20200818
  Transmission Date: 20201103
  Serious: No
  Sender: FDA-Public Use
  Company Number: US-VIFOR (INTERNATIONAL) INC.-VIT-2020-08174

PATIENT
  Age: 80 Year
  Sex: Male

DRUGS (1)
  1. VELTASSA [Suspect]
     Active Substance: PATIROMER
     Indication: HYPERKALAEMIA
     Route: 048
     Dates: start: 20180526

REACTIONS (5)
  - Catheter placement [Unknown]
  - Off label use [Unknown]
  - Fall [Unknown]
  - Product dose omission issue [Unknown]
  - Chest tube insertion [Unknown]

NARRATIVE: CASE EVENT DATE: 20180526
